FAERS Safety Report 6317913-6 (Version None)
Quarter: 2009Q3

REPORT INFORMATION
  Report Type: 
  Country: None (occurrence: None)
  Receive Date: 20090821
  Receipt Date: 20090812
  Transmission Date: 20100115
  Serious: Yes (Other)
  Sender: FDA-Public Use
  Company Number: US-JNJFOC-20090803625

PATIENT
  Sex: Female
  Weight: 84.82 kg

DRUGS (10)
  1. REMICADE [Suspect]
     Indication: ANKYLOSING SPONDYLITIS
     Route: 042
  2. REMICADE [Suspect]
     Indication: CROHN'S DISEASE
     Route: 042
  3. ESTRACE [Concomitant]
     Indication: HORMONE REPLACEMENT THERAPY
  4. SYNTHROID [Concomitant]
     Indication: HYPOTHYROIDISM
  5. MAXZIDE [Concomitant]
  6. AVAPRO [Concomitant]
     Indication: HYPERTENSION
  7. PROTONIX [Concomitant]
     Indication: GASTRIC ULCER
  8. METHOTREXATE [Concomitant]
     Indication: ARTHRITIS
  9. CELEBREX [Concomitant]
     Indication: ARTHRALGIA
  10. TRAMADOL [Concomitant]
     Indication: PAIN

REACTIONS (2)
  - HERPES ZOSTER [None]
  - HERPES ZOSTER OPHTHALMIC [None]
